FAERS Safety Report 6304567-8 (Version None)
Quarter: 2009Q3

REPORT INFORMATION
  Report Type: 
  Country: None (occurrence: None)
  Receive Date: 20090806
  Receipt Date: 20090723
  Transmission Date: 20100115
  Serious: Yes (Hospitalization)
  Sender: FDA-Public Use
  Company Number: 2009-02838

PATIENT
  Age: 63 Year
  Sex: Female
  Weight: 86 kg

DRUGS (1)
  1. VELCADE [Suspect]
     Indication: MULTIPLE MYELOMA
     Dosage: 1.3 MG/M2; INTRAVENOUS
     Route: 042
     Dates: start: 20090706, end: 20090709

REACTIONS (5)
  - METABOLIC DISORDER [None]
  - NO THERAPEUTIC RESPONSE [None]
  - PYREXIA [None]
  - SUPRAVENTRICULAR TACHYCARDIA [None]
  - TUMOUR LYSIS SYNDROME [None]
